FAERS Safety Report 5755560-5 (Version None)
Quarter: 2008Q2

REPORT INFORMATION
  Report Type: 
  Country: None (occurrence: None)
  Receive Date: 20080530
  Receipt Date: 20080530
  Transmission Date: 20081010
  Serious: Yes (Death, Life-Threatening, Hospitalization)
  Sender: FDA-Public Use
  Company Number: None

PATIENT
  Age: 85 Year
  Sex: Female

DRUGS (21)
  1. LENALIDOMIDE [Suspect]
     Indication: MULTIPLE MYELOMA
  2. MORPHINE [Concomitant]
  3. UNASYN [Concomitant]
  4. NEUPOGEN [Concomitant]
  5. HUMALOG [Concomitant]
  6. AMBIEN [Concomitant]
  7. ZOMETA [Concomitant]
  8. PROTONIX [Concomitant]
  9. ZOFRAN [Concomitant]
  10. LEXAPRO [Concomitant]
  11. NEXIUM [Concomitant]
  12. LORAZEPAM [Concomitant]
  13. PIPERACILLIN AND TAZOBACTAM [Concomitant]
  14. LANOXIN [Concomitant]
  15. LASIX [Concomitant]
  16. DECADRON [Concomitant]
  17. LEVOPHED [Concomitant]
  18. NARCAN [Concomitant]
  19. RASBURICASE [Concomitant]
  20. DECADRON [Concomitant]
  21. VITAMIN K TAB [Concomitant]

REACTIONS (5)
  - HYPERCALCAEMIA [None]
  - HYPERKALAEMIA [None]
  - HYPERURICAEMIA [None]
  - RENAL FAILURE ACUTE [None]
  - TUMOUR LYSIS SYNDROME [None]
